FAERS Safety Report 9114989 (Version 1)
Quarter: 2013Q1

REPORT INFORMATION
  Report Type: Spontaneous
  Country: FR (occurrence: FR)
  Receive Date: 20130128
  Receipt Date: 20130128
  Transmission Date: 20140127
  Serious: Yes (Other)
  Sender: FDA-Public Use
  Company Number: FR-TEVA-381107ISR

PATIENT
  Sex: Female

DRUGS (1)
  1. LOSARTAN [Suspect]
     Dosage: LOSARTAN WAS WITHDRAWN AT 26 WEEKS GESTATION
     Route: 065

REACTIONS (1)
  - Abortion induced [Unknown]
